FAERS Safety Report 16762538 (Version 2)
Quarter: 2019Q3

REPORT INFORMATION
  Report Type: Spontaneous
  Country: FR (occurrence: FR)
  Receive Date: 20190831
  Receipt Date: 20190924
  Transmission Date: 20191005
  Serious: Yes (Disabling, Other)
  Sender: FDA-Public Use
  Company Number: FR-CELLTRION INC.-2019FR022303

PATIENT

DRUGS (6)
  1. DECONTRACTYL [MEPHENESIN] [Concomitant]
     Active Substance: MEPHENESIN
     Dosage: UNK
  2. TRUXIMA [Suspect]
     Active Substance: RITUXIMAB-ABBS
     Indication: PEMPHIGUS
     Dosage: 500 MG, AT 15-DAY INTERVAL
     Dates: start: 201902, end: 201902
  3. CORTISONE [Concomitant]
     Active Substance: CORTISONE
     Dosage: UNK
  4. CORTANCYL [Concomitant]
     Active Substance: PREDNISONE
     Indication: PEMPHIGUS
     Dosage: UNK
  5. TRUXIMA [Suspect]
     Active Substance: RITUXIMAB-ABBS
     Dosage: 500 MG, AT 15-DAY INTERVAL
     Dates: start: 20190314, end: 20190314
  6. DOLIPRANE [Concomitant]
     Active Substance: ACETAMINOPHEN
     Dosage: UNK

REACTIONS (12)
  - Dizziness [Recovered/Resolved]
  - Arthralgia [Recovered/Resolved]
  - Product use issue [Unknown]
  - Underdose [Unknown]
  - Fatigue [Recovered/Resolved]
  - Eructation [Recovered/Resolved]
  - Feeding disorder [Recovered/Resolved]
  - Myalgia [Recovered/Resolved]
  - Nasal congestion [Recovered/Resolved]
  - Muscle spasms [Recovered/Resolved]
  - Monoplegia [Recovered/Resolved]
  - Abdominal pain upper [Recovered/Resolved]

NARRATIVE: CASE EVENT DATE: 20190315
